FAERS Safety Report 9646126 (Version 1)
Quarter: 2013Q4

REPORT INFORMATION
  Report Type: Spontaneous
  Country: JP (occurrence: JP)
  Receive Date: 20131025
  Receipt Date: 20131025
  Transmission Date: 20140711
  Serious: Yes (Other)
  Sender: FDA-Public Use
  Company Number: JP-PFIZER INC-2013299587

PATIENT
  Age: 28 Year
  Sex: Female

DRUGS (2)
  1. ZITHROMAC [Suspect]
     Dosage: UNK MG, UNK
     Route: 048
     Dates: start: 201201
  2. ZITHROMAC [Suspect]
     Dosage: UNK MG, UNK
     Route: 048
     Dates: start: 201202

REACTIONS (1)
  - Drug eruption [Unknown]
